FAERS Safety Report 4372927-0 (Version None)
Quarter: 2004Q2

REPORT INFORMATION
  Report Type: 
  Country: None (occurrence: None)
  Receive Date: 20040603
  Receipt Date: 20040518
  Transmission Date: 20050107
  Serious: Yes (Other)
  Sender: FDA-Public Use
  Company Number: TOS-000624

PATIENT
  Age: 82 Year
  Sex: Female

DRUGS (1)
  1. TOSITUMOMAB, IODINE I 131 TOSITUMOMAB (TOSITUMOMAB, IODINE I 131 TOSIT [Suspect]
     Indication: NON-HODGKIN'S LYMPHOMA
     Dosage: I 131 TOSITUMOMAB 62.6 MCI, INTRAVENOUS
     Route: 042
     Dates: start: 20010201, end: 20010201

REACTIONS (2)
  - DEPENDENCE ON ENABLING MACHINE OR DEVICE [None]
  - RENAL FAILURE [None]
